FAERS Safety Report 14155671 (Version 4)
Quarter: 2018Q2

REPORT INFORMATION
  Report Type: Spontaneous
  Country: US (occurrence: US)
  Receive Date: 20171103
  Receipt Date: 20180522
  Transmission Date: 20180711
  Serious: No
  Sender: FDA-Public Use
  Company Number: US-PFIZER INC-2017469681

PATIENT
  Age: 14 Year
  Sex: Female
  Weight: 77.11 kg

DRUGS (1)
  1. MIDAZOLAM [Suspect]
     Active Substance: MIDAZOLAM HYDROCHLORIDE
     Dosage: 2 ML, VIA NASAL SPRAY
     Route: 045
     Dates: start: 2017

REACTIONS (2)
  - Intentional product use issue [Unknown]
  - Drug ineffective for unapproved indication [Unknown]

NARRATIVE: CASE EVENT DATE: 2017
